FAERS Safety Report 25831812 (Version 1)
Quarter: 2025Q3

REPORT INFORMATION
  Report Type: Spontaneous
  Country: US (occurrence: US)
  Receive Date: 20250922
  Receipt Date: 20250922
  Transmission Date: 20251021
  Serious: Yes (Other)
  Sender: SANDOZ
  Company Number: US-SANDOZ-SDZ2025US068502

PATIENT
  Sex: Female

DRUGS (2)
  1. ZOFRAN [Suspect]
     Active Substance: ONDANSETRON HYDROCHLORIDE
     Indication: Nausea
     Route: 065
     Dates: start: 2022
  2. TUKYSA [Concomitant]
     Active Substance: TUCATINIB
     Indication: Chemotherapy
     Route: 065
     Dates: start: 2022

REACTIONS (8)
  - Neuropathy peripheral [Unknown]
  - Brain fog [Unknown]
  - Fatigue [Unknown]
  - Arthritis [Unknown]
  - Anxiety [Unknown]
  - Migraine [Unknown]
  - Pain [Unknown]
  - Cough [Unknown]
